FAERS Safety Report 5523849-0 (Version None)
Quarter: 2007Q4

REPORT INFORMATION
  Report Type: 
  Country: None (occurrence: None)
  Receive Date: 20071121
  Receipt Date: 20071112
  Transmission Date: 20080405
  Serious: Yes (Hospitalization)
  Sender: FDA-Public Use
  Company Number: EE-SHR-EE-2007-042896

PATIENT
  Age: 75 Year
  Sex: Male
  Weight: 60 kg

DRUGS (2)
  1. FLUDARA [Suspect]
     Dosage: 30 MG, CYCLES
     Route: 042
     Dates: start: 20070901
  2. CYCLOPHOSPHAMIDE [Suspect]
     Dosage: 300 MG, UNK
     Route: 042

REACTIONS (5)
  - ABDOMINAL PAIN [None]
  - DIZZINESS [None]
  - MALAISE [None]
  - NAUSEA [None]
  - VOMITING [None]
